FAERS Safety Report 22170351 (Version 1)
Quarter: 2023Q2

REPORT INFORMATION
  Report Type: Report from Study
  Country: BR (occurrence: BR)
  Receive Date: 20230404
  Receipt Date: 20230404
  Transmission Date: 20230721
  Serious: Yes (Death, Hospitalization)
  Sender: FDA-Public Use
  Company Number: BR-BIOGEN-2023BI01196508

PATIENT
  Age: 15 Year
  Sex: Male
  Weight: 27 kg

DRUGS (1)
  1. SPINRAZA [Suspect]
     Active Substance: NUSINERSEN
     Indication: Spinal muscular atrophy
     Route: 050
     Dates: end: 202212

REACTIONS (2)
  - Respiratory arrest [Fatal]
  - Spinal disorder [Unknown]

NARRATIVE: CASE EVENT DATE: 20230102
